FAERS Safety Report 9505387 (Version 1)
Quarter: 2013Q1

REPORT INFORMATION
  Report Type: Spontaneous
  Country: US (occurrence: None)
  Receive Date: 20130220
  Receipt Date: 20130220
  Transmission Date: 20140127
  Serious: No
  Sender: FDA-Public Use
  Company Number: 1000040181

PATIENT
  Age: 28 Year
  Sex: Female

DRUGS (6)
  1. VIIBRYD (VILAZODONE HYDROCHLORIDE) [Suspect]
     Indication: DEPRESSION
     Dosage: 10 MG (10 MG, 1 IN 1 D), ORAL
     Route: 048
     Dates: start: 20120829, end: 20120904
  2. VIIBRYD (VILAZODONE HYDROCHLORIDE) [Suspect]
     Indication: ANXIETY
     Dosage: 10 MG (10 MG, 1 IN 1 D), ORAL
     Route: 048
     Dates: start: 20120829, end: 20120904
  3. VIIBYRD (VILAZODONE HYDROCHLORIDE) [Suspect]
     Indication: DEPRESSION
     Dosage: 40 MG (40 MG, 1 IN 1 D), ORAL
     Dates: start: 20120912, end: 20120919
  4. VIIBYRD (VILAZODONE HYDROCHLORIDE) [Suspect]
     Indication: ANXIETY
     Dosage: 40 MG (40 MG, 1 IN 1 D), ORAL
     Dates: start: 20120912, end: 20120919
  5. XANAX (ALPRAZOLAM) (ALPRAZOLAM) [Concomitant]
  6. L-CARNITINE (L-CARNITINE) (L-CARNITINE) [Concomitant]

REACTIONS (3)
  - Paranoia [None]
  - Feeling abnormal [None]
  - Poor quality sleep [None]
